FAERS Safety Report 5703088-0 (Version None)
Quarter: 2008Q2

REPORT INFORMATION
  Report Type: 
  Country: None (occurrence: None)
  Receive Date: 20080411
  Receipt Date: 20080330
  Transmission Date: 20081010
  Serious: Yes (Hospitalization, Other)
  Sender: FDA-Public Use
  Company Number: US-PFIZER INC-2007057436

PATIENT
  Sex: Female
  Weight: 74.8 kg

DRUGS (9)
  1. CHANTIX [Suspect]
     Indication: SMOKING CESSATION THERAPY
     Dosage: FREQ:EVERY DAY
     Route: 048
  2. TEGRETOL [Suspect]
     Indication: MIGRAINE
  3. PREMARIN [Concomitant]
  4. SEROQUEL [Concomitant]
  5. KLONOPIN [Concomitant]
  6. LISINOPRIL [Concomitant]
  7. HYDROCHLOROTHIAZIDE [Concomitant]
  8. RISPERDAL [Concomitant]
  9. LAMICTAL [Concomitant]

REACTIONS (7)
  - COLITIS ULCERATIVE [None]
  - DEPRESSION [None]
  - DIVERTICULITIS [None]
  - GASTRIC ULCER [None]
  - MOOD ALTERED [None]
  - PAIN [None]
  - WEIGHT DECREASED [None]
